FAERS Safety Report 25964773 (Version 1)
Quarter: 2025Q4

REPORT INFORMATION
  Report Type: Spontaneous
  Country: EU (occurrence: EU)
  Receive Date: 20251027
  Receipt Date: 20251027
  Transmission Date: 20260118
  Serious: Yes (Other)
  Sender: BAYER HEALTHCARE PHARMACEUTICALS INC.
  Company Number: EU-BAYER-2025A139218

PATIENT
  Age: 46 Year
  Sex: Male
  Weight: 88 kg

DRUGS (9)
  1. KERENDIA [Suspect]
     Active Substance: FINERENONE
     Indication: Chronic kidney disease
     Dosage: 10 MG
  2. KERENDIA [Suspect]
     Active Substance: FINERENONE
     Indication: Type 2 diabetes mellitus
  3. METFORMIN [Concomitant]
     Active Substance: METFORMIN HYDROCHLORIDE
  4. SEMAGLUTIDE [Concomitant]
     Active Substance: SEMAGLUTIDE
  5. NEBIVOLOL [Concomitant]
     Active Substance: NEBIVOLOL
  6. Perindopril/amlodipin acino [Concomitant]
  7. MOXONIDINE [Concomitant]
     Active Substance: MOXONIDINE
  8. DAPAGLIFLOZIN [Concomitant]
     Active Substance: DAPAGLIFLOZIN
  9. Atorvastatin/ezetimib teva [Concomitant]

REACTIONS (2)
  - Urine albumin/creatinine ratio increased [None]
  - Blood potassium increased [None]
